FAERS Safety Report 10735989 (Version 2)
Quarter: 2015Q1

REPORT INFORMATION
  Report Type: Report from Study
  Country: DE (occurrence: DE)
  Receive Date: 20150126
  Receipt Date: 20150210
  Transmission Date: 20150721
  Serious: Yes (Death, Hospitalization)
  Sender: FDA-Public Use
  Company Number: DE-BEH-2015048031

PATIENT
  Age: 58 Year
  Sex: Male
  Weight: 84 kg

DRUGS (7)
  1. PRIVIGEN [Suspect]
     Active Substance: HUMAN IMMUNOGLOBULIN G
     Indication: HUMORAL IMMUNE DEFECT
     Dosage: INFUSION RATE: MIN. 1.67 ML /MIN,  MAX. 1.67 ML/MIN
     Dates: start: 20141028, end: 20141028
  2. CALCET [Concomitant]
  3. PRIVIGEN [Suspect]
     Active Substance: HUMAN IMMUNOGLOBULIN G
     Dosage: INFUSION RATE: MIN. 1.67 ML/MIN, MAX. 1.67 ML/MIN
     Dates: start: 20141211, end: 20141211
  4. PRIVIGEN [Suspect]
     Active Substance: HUMAN IMMUNOGLOBULIN G
     Dosage: INFUSION RATE: MIN 1.90 ML/MIN,  MAX. 1.90 ML/MIN
     Dates: start: 20141120, end: 20141120
  5. BISOPROLOL [Concomitant]
     Active Substance: BISOPROLOL
  6. RAMIPRIL. [Concomitant]
     Active Substance: RAMIPRIL
  7. AMLODIPIN [Concomitant]
     Active Substance: AMLODIPINE BESYLATE

REACTIONS (16)
  - Loss of consciousness [Not Recovered/Not Resolved]
  - Faecal incontinence [Not Recovered/Not Resolved]
  - Hemiparesis [Not Recovered/Not Resolved]
  - Intraventricular haemorrhage [Not Recovered/Not Resolved]
  - Brain oedema [Not Recovered/Not Resolved]
  - Coma [Not Recovered/Not Resolved]
  - Hypoxia [Not Recovered/Not Resolved]
  - Cerebrovascular accident [Not Recovered/Not Resolved]
  - Aphasia [Not Recovered/Not Resolved]
  - Cerebral haemorrhage [Not Recovered/Not Resolved]
  - Facial paresis [Not Recovered/Not Resolved]
  - Cardiac arrest [Fatal]
  - Acute respiratory failure [Not Recovered/Not Resolved]
  - Chronic kidney disease [Not Recovered/Not Resolved]
  - Urinary incontinence [Not Recovered/Not Resolved]
  - Nasopharyngitis [Recovering/Resolving]

NARRATIVE: CASE EVENT DATE: 20141210
